FAERS Safety Report 8381949-4 (Version None)
Quarter: 2012Q2

REPORT INFORMATION
  Report Type: 
  Country: None (occurrence: None)
  Receive Date: 20120524
  Receipt Date: 20120509
  Transmission Date: 20120825
  Serious: Yes (Life-Threatening, Hospitalization, Other)
  Sender: FDA-Public Use
  Company Number: DE-JNJFOC-20120510220

PATIENT
  Age: 41 Year
  Sex: Female

DRUGS (8)
  1. REMICADE [Suspect]
     Route: 042
  2. METHOTREXATE [Concomitant]
     Route: 065
  3. CORTISONE ACETATE [Concomitant]
     Route: 065
  4. REMICADE [Suspect]
     Indication: CROHN'S DISEASE
     Route: 042
  5. HUMIRA [Suspect]
     Route: 058
     Dates: start: 20090401, end: 20090925
  6. HUMIRA [Suspect]
     Indication: CROHN'S DISEASE
     Route: 058
  7. HUMIRA [Suspect]
     Route: 058
  8. SALONPAS [Concomitant]
     Route: 065

REACTIONS (4)
  - MALNUTRITION [None]
  - DRUG INTOLERANCE [None]
  - ILEUS [None]
  - CROHN'S DISEASE [None]
